FAERS Safety Report 4610187-3 (Version None)
Quarter: 2005Q2

REPORT INFORMATION
  Report Type: 
  Country: None (occurrence: None)
  Receive Date: 20050301
  Receipt Date: 20041112
  Transmission Date: 20051028
  Serious: No
  Sender: FDA-Public Use
  Company Number: WAES 0411USA02312

PATIENT
  Age: 44 Year
  Sex: Male

DRUGS (2)
  1. ZETIA [Suspect]
     Dosage: 10 MG DAILY PO
     Route: 048
     Dates: start: 20040811
  2. ZOCOR [Concomitant]

REACTIONS (2)
  - ALOPECIA [None]
  - SKIN REACTION [None]
